FAERS Safety Report 7033916-0 (Version None)
Quarter: 2010Q4

REPORT INFORMATION
  Report Type: 
  Country: None (occurrence: None)
  Receive Date: 20101005
  Receipt Date: 20100924
  Transmission Date: 20110411
  Serious: Yes (Death, Hospitalization, Other)
  Sender: FDA-Public Use
  Company Number: 2010US003197

PATIENT
  Age: 54 Year
  Sex: Male

DRUGS (3)
  1. PROGRAF [Suspect]
     Indication: HEART TRANSPLANT
     Dosage: 2 MG, BID, ORAL
     Route: 048
     Dates: start: 20040101, end: 20100101
  2. CELLCEPT [Concomitant]
  3. AVELOX [Concomitant]

REACTIONS (16)
  - BACTERIAL INFECTION [None]
  - CARDIAC FAILURE CONGESTIVE [None]
  - CEREBRAL INFARCTION [None]
  - COMA [None]
  - CONVULSION [None]
  - DEPRESSED LEVEL OF CONSCIOUSNESS [None]
  - DRUG TOXICITY [None]
  - ENCEPHALOPATHY [None]
  - ENDOTRACHEAL INTUBATION [None]
  - HYPERTENSION [None]
  - JUGULAR VEIN THROMBOSIS [None]
  - RENAL FAILURE CHRONIC [None]
  - SUBARACHNOID HAEMORRHAGE [None]
  - SUBCLAVIAN VEIN THROMBOSIS [None]
  - TROPONIN INCREASED [None]
  - UNRESPONSIVE TO STIMULI [None]
